FAERS Safety Report 24760162 (Version 1)
Quarter: 2024Q4

REPORT INFORMATION
  Report Type: Spontaneous
  Country: US (occurrence: US)
  Receive Date: 20241220
  Receipt Date: 20241220
  Transmission Date: 20250114
  Serious: No
  Sender: PFIZER
  Company Number: US-PFIZER INC-202400328096

PATIENT
  Age: 78 Year

DRUGS (1)
  1. IBRANCE [Suspect]
     Active Substance: PALBOCICLIB
     Dosage: 100 MG, CYCLIC; DAILY FOR 21 DAYS, THEN 7 DAYS OFF

REACTIONS (3)
  - Malaise [Unknown]
  - Burning sensation [Unknown]
  - White blood cell count decreased [Unknown]
